FAERS Safety Report 4712884-8 (Version None)
Quarter: 2005Q3

REPORT INFORMATION
  Report Type: 
  Country: None (occurrence: None)
  Receive Date: 20050712
  Receipt Date: 20050712
  Transmission Date: 20060218
  Serious: No
  Sender: FDA-Public Use
  Company Number: None

PATIENT
  Age: 68 Year
  Sex: Male
  Weight: 65 kg

DRUGS (11)
  1. CIPRO [Suspect]
     Indication: PNEUMONIA
     Dosage: 200 MG   TWICE DAILY   INTRAVENOU
     Route: 042
     Dates: start: 20050430, end: 20050505
  2. THALIDOMIDE [Concomitant]
  3. CYCLOSPORINE [Concomitant]
  4. OSCAL WITH D [Concomitant]
  5. LIPITOR [Concomitant]
  6. ALBEE WITH C [Concomitant]
  7. DRONABINOL [Concomitant]
  8. NEURONTIN [Concomitant]
  9. MIDODRINE HCL [Concomitant]
  10. PROTONIX [Concomitant]
  11. PREDNISONE [Concomitant]

REACTIONS (1)
  - PSYCHOTIC DISORDER [None]
